FAERS Safety Report 8632344 (Version 2)
Quarter: 2012Q4

REPORT INFORMATION
  Report Type: 
  Country: US (occurrence: US)
  Receive Date: 20120625
  Receipt Date: 20120920
  Transmission Date: 20130627
  Serious: Yes (Hospitalization, Other)
  Sender: FDA-Public Use
  Company Number: US-BAYER-2012-060727

PATIENT
  Age: 49 Year
  Sex: Female
  Weight: 71.2 kg

DRUGS (14)
  1. YAZ [Suspect]
     Indication: CONTRACEPTION
     Dosage: UNK
     Dates: start: 20060819, end: 20100205
  2. YAZ [Suspect]
     Indication: MENSTRUAL CYCLE MANAGEMENT
  3. SYNTHROID [Concomitant]
     Indication: HYPOTHYROIDISM
     Dosage: 25mcg-75mcg
     Route: 048
     Dates: start: 20050810, end: 20060111
  4. SYNTHROID [Concomitant]
     Indication: HYPOTHYROIDISM
     Dosage: 125 mg, QD
     Dates: start: 20060624, end: 20120228
  5. SYNTHROID [Concomitant]
     Indication: HYPOTHYROIDISM
     Dosage: 125 ?g, UNK
     Dates: start: 200508
  6. LEVOTHYROXINE [Concomitant]
     Indication: HYPOTHYROIDISM
     Dosage: 75 ?g, UNK
     Route: 048
     Dates: start: 20060221, end: 20060502
  7. ZITHROMAX [Concomitant]
     Dosage: UNK
     Route: 048
     Dates: start: 20101221
  8. OTC -DECONGESTANTS [Concomitant]
     Dosage: UNK
     Route: 048
     Dates: start: 20101221
  9. VALTREX [Concomitant]
     Dosage: 1 g 2 BID, PRN
     Route: 048
     Dates: start: 20101221
  10. RESPIRATORY SYSTEM [Concomitant]
     Dosage: 1 QD, PRN
     Route: 048
     Dates: start: 20101221
  11. AZITHROMYCIN [Concomitant]
     Dosage: 250 mg, UNK
     Route: 048
     Dates: start: 20100125
  12. CLARITIN [Concomitant]
     Dosage: 1 daily prn (interpreted as as needed)
     Dates: start: 20080128, end: 20120126
  13. DILAUDID [Concomitant]
  14. ZOFRAN [Concomitant]

REACTIONS (8)
  - Thrombosis [None]
  - Pelvic venous thrombosis [None]
  - Deep vein thrombosis [None]
  - Thrombophlebitis superficial [None]
  - Injury [None]
  - Pain [None]
  - Pain in extremity [None]
  - Oedema peripheral [None]
